FAERS Safety Report 24792082 (Version 3)
Quarter: 2025Q4

REPORT INFORMATION
  Report Type: Spontaneous
  Country: EU (occurrence: EU)
  Receive Date: 20241231
  Receipt Date: 20251030
  Transmission Date: 20260118
  Serious: Yes (Hospitalization, Disabling)
  Sender: SANDOZ
  Company Number: None

PATIENT
  Age: 59 Year
  Sex: Male
  Weight: 63.4 kg

DRUGS (22)
  1. AMIKACIN [Suspect]
     Active Substance: AMIKACIN
     Indication: Antibiotic prophylaxis
     Dosage: 30 MG/KG, QD
     Route: 042
     Dates: start: 20230405, end: 20230405
  2. BACTRIM [Suspect]
     Active Substance: SULFAMETHOXAZOLE\TRIMETHOPRIM
     Dosage: 1 DOSAGE FORM, BID, (EVERY 2 DAYS, 1  COMPRIM? LUNDI-MERCREDI-VENDREDI )
     Route: 048
     Dates: start: 20230421, end: 20230503
  3. BACTRIM [Suspect]
     Active Substance: SULFAMETHOXAZOLE\TRIMETHOPRIM
     Indication: Opportunistic infection prophylaxis
     Dosage: 1 DOSAGE FORM, BID, 1 TABLET MONDAY  WEDNESDAY FRIDAY(~400/80 MG / 1 EA )
     Route: 048
     Dates: start: 20230322, end: 20230404
  4. CYCLOSPORINE [Suspect]
     Active Substance: CYCLOSPORINE
     Indication: Prophylaxis against transplant rejection
     Dosage: UNK
     Route: 065
     Dates: start: 20230329, end: 20230405
  5. CYCLOPHOSPHAMIDE [Suspect]
     Active Substance: CYCLOPHOSPHAMIDE
     Indication: Bone marrow conditioning regimen
     Dosage: 3500 MG,QD
     Route: 042
     Dates: start: 20230401, end: 20230402
  6. CEFEPIME [Suspect]
     Active Substance: CEFEPIME HYDROCHLORIDE
     Dosage: 2 G,QD
     Route: 042
     Dates: start: 20230420, end: 20230503
  7. CEFEPIME [Suspect]
     Active Substance: CEFEPIME HYDROCHLORIDE
     Indication: Opportunistic infection prophylaxis
     Dosage: 2 G, Q8H
     Route: 042
     Dates: start: 20230330, end: 20230405
  8. DAPTOMYCIN [Suspect]
     Active Substance: DAPTOMYCIN
     Indication: Antibiotic prophylaxis
     Dosage: 10 MG/KG, QD
     Route: 042
     Dates: start: 20230405, end: 20230417
  9. DEFITELIO [Suspect]
     Active Substance: DEFIBROTIDE SODIUM
     Indication: Venoocclusive liver disease
     Dosage: 450 MG, Q6H
     Route: 042
     Dates: start: 20230405, end: 20230503
  10. FUROSEMIDE [Suspect]
     Active Substance: FUROSEMIDE
     Indication: Polyuria
     Dosage: UNK, FREQUENCY TEXT:05/APR/2023
     Route: 065
     Dates: start: 20230405
  11. MYCOPHENOLATE MOFETIL [Suspect]
     Active Substance: MYCOPHENOLATE MOFETIL
     Indication: Prophylaxis against transplant rejection
     Dosage: 1 G, Q12H
     Route: 042
     Dates: start: 20230329, end: 20230403
  12. MYCOPHENOLATE MOFETIL [Suspect]
     Active Substance: MYCOPHENOLATE MOFETIL
     Dosage: 1 G, Q12H
     Route: 042
     Dates: start: 20230420, end: 20230503
  13. VALACYCLOVIR HYDROCHLORIDE [Suspect]
     Active Substance: VALACYCLOVIR HYDROCHLORIDE
     Indication: Opportunistic infection prophylaxis
     Dosage: UNK
     Route: 065
     Dates: start: 20230322, end: 20230404
  14. VALACYCLOVIR HYDROCHLORIDE [Suspect]
     Active Substance: VALACYCLOVIR HYDROCHLORIDE
     Dosage: UNK
     Route: 065
     Dates: start: 20230421, end: 20230503
  15. ATORVASTATIN [Concomitant]
     Active Substance: ATORVASTATIN
     Indication: Dyslipidaemia
     Dosage: 20 MG,QD
     Route: 048
     Dates: end: 20230404
  16. FLUDARABINE PHOSPHATE [Concomitant]
     Active Substance: FLUDARABINE PHOSPHATE
     Indication: Bone marrow conditioning regimen
     Dosage: 55 MG,QD
     Route: 042
     Dates: start: 20230325, end: 20230327
  17. RUXOLITINIB [Concomitant]
     Active Substance: RUXOLITINIB
     Indication: Myelofibrosis
     Dosage: 20 MG, Q12H
     Route: 048
     Dates: start: 20230322, end: 20230328
  18. MELPHALAN [Concomitant]
     Active Substance: MELPHALAN
     Indication: Bone marrow conditioning regimen
     Dosage: 250 MG,QD
     Route: 042
     Dates: start: 20230327, end: 20230327
  19. METHYLPREDNISOLONE [Concomitant]
     Active Substance: METHYLPREDNISOLONE
     Indication: Prophylaxis against transplant rejection
     Dosage: UNK
     Route: 042
     Dates: start: 20230405
  20. PANTOPRAZOLE [Concomitant]
     Active Substance: PANTOPRAZOLE
     Indication: Prophylaxis against gastrointestinal ulcer
     Dosage: 20 MG,QD
     Route: 065
     Dates: start: 20230421
  21. PIPERACILLIN AND TAZOBACTAM [Concomitant]
     Active Substance: PIPERACILLIN SODIUM\TAZOBACTAM SODIUM
     Indication: Antibiotic prophylaxis
     Dosage: UNK, ONCE/SINGLE
     Route: 042
     Dates: start: 20230406, end: 20230417
  22. POSACONAZOLE [Concomitant]
     Active Substance: POSACONAZOLE
     Indication: Opportunistic infection prophylaxis
     Dosage: 400 MG,QD
     Route: 065
     Dates: start: 20230412

REACTIONS (1)
  - Acute kidney injury [Not Recovered/Not Resolved]

NARRATIVE: CASE EVENT DATE: 20230405
